FAERS Safety Report 8390410-2 (Version None)
Quarter: 2012Q2

REPORT INFORMATION
  Report Type: 
  Country: None (occurrence: None)
  Receive Date: 20120529
  Receipt Date: 20120516
  Transmission Date: 20120825
  Serious: Yes (Hospitalization)
  Sender: FDA-Public Use
  Company Number: FR-VERTEX PHARMACEUTICALS INC.-000000000000000723

PATIENT
  Age: 49 Year
  Sex: Male

DRUGS (3)
  1. TELAPREVIR [Suspect]
     Indication: HEPATITIS C
     Dosage: DOSAGE FORM: TABLET
     Route: 048
     Dates: start: 20111220, end: 20120211
  2. RIBAVIRINE [Concomitant]
     Indication: HEPATITIS C
     Dosage: DOSAGE FORM: UNKNOWN, 2 DOSES IN THE MORNING AND 3 DOSES IN THE EVENING
     Route: 065
     Dates: start: 20111220, end: 20120211
  3. PEGASYS [Concomitant]
     Indication: HEPATITIS C
     Dosage: DOSAGE FORM: UNKNOWN
     Route: 065
     Dates: start: 20111220, end: 20120211

REACTIONS (9)
  - SEPSIS [None]
  - KLEBSIELLA SEPSIS [None]
  - CHOLESTASIS [None]
  - PNEUMOCOCCAL SEPSIS [None]
  - ENTEROBACTER SEPSIS [None]
  - PANCREATIC FISTULA [None]
  - CANDIDIASIS [None]
  - DYSURIA [None]
  - CYSTIC FIBROSIS PANCREATIC [None]
